FAERS Safety Report 8390141-9 (Version None)
Quarter: 2012Q2

REPORT INFORMATION
  Report Type: 
  Country: None (occurrence: None)
  Receive Date: 20120529
  Receipt Date: 20120517
  Transmission Date: 20120825
  Serious: Yes (Other)
  Sender: FDA-Public Use
  Company Number: US-SANOFI-AVENTIS-2012SA035466

PATIENT

DRUGS (1)
  1. LANTUS [Suspect]
     Dosage: DOSE:60 UNIT(S)
     Route: 058

REACTIONS (3)
  - BLOOD GLUCOSE INCREASED [None]
  - MACULAR DEGENERATION [None]
  - WEIGHT INCREASED [None]
